FAERS Safety Report 4728406-1 (Version None)
Quarter: 2005Q3

REPORT INFORMATION
  Report Type: 
  Country: None (occurrence: None)
  Receive Date: 20050729
  Receipt Date: 20040818
  Transmission Date: 20060218
  Serious: No
  Sender: FDA-Public Use
  Company Number: US-GLAXOSMITHKLINE-A0522627A

PATIENT
  Age: 9 Week
  Sex: Female

DRUGS (3)
  1. ZANTAC [Suspect]
     Dosage: .8ML TWICE PER DAY
     Route: 048
     Dates: start: 20040801
  2. MYLICON DROPS [Concomitant]
  3. GRIPE WATER [Concomitant]

REACTIONS (2)
  - PHARMACEUTICAL PRODUCT COMPLAINT [None]
  - VOMITING [None]
